FAERS Safety Report 21624400 (Version 1)
Quarter: 2022Q4

REPORT INFORMATION
  Report Type: Spontaneous
  Country: US (occurrence: US)
  Receive Date: 20221121
  Receipt Date: 20221121
  Transmission Date: 20230112
  Serious: Yes (Life-Threatening, Hospitalization, Other)
  Sender: FDA-Public Use
  Company Number: US-BRACCO-2022US02871

PATIENT
  Age: 64 Year
  Sex: Male

DRUGS (11)
  1. LUMASON [Suspect]
     Active Substance: SULFUR HEXAFLUORIDE
     Indication: Echocardiogram
     Dosage: 2 ML, SINGLE
     Route: 042
     Dates: start: 20220719, end: 20220719
  2. LUMASON [Suspect]
     Active Substance: SULFUR HEXAFLUORIDE
     Indication: Echocardiogram
     Dosage: 2 ML, SINGLE
     Route: 042
     Dates: start: 20220719, end: 20220719
  3. LUMASON [Suspect]
     Active Substance: SULFUR HEXAFLUORIDE
     Indication: Echocardiogram
     Dosage: 2 ML, SINGLE
     Route: 042
     Dates: start: 20220719, end: 20220719
  4. COREG [Concomitant]
     Active Substance: CARVEDILOL
  5. BENADRYL [Concomitant]
     Active Substance: DIPHENHYDRAMINE HYDROCHLORIDE
  6. TYLENOL PM [Concomitant]
     Active Substance: ACETAMINOPHEN\DIPHENHYDRAMINE
  7. NYSTATIN [Concomitant]
     Active Substance: NYSTATIN
  8. PRILOSEC [Concomitant]
     Active Substance: OMEPRAZOLE MAGNESIUM
  9. ADALIMUMAB [Concomitant]
     Active Substance: ADALIMUMAB
  10. ASPIRIN [Concomitant]
     Active Substance: ASPIRIN
  11. PENICILLIN [Concomitant]
     Active Substance: PENICILLIN

REACTIONS (1)
  - Anaphylactic reaction [Recovered/Resolved]

NARRATIVE: CASE EVENT DATE: 20220719
